FAERS Safety Report 24075283 (Version 2)
Quarter: 2024Q4

REPORT INFORMATION
  Report Type: Spontaneous
  Country: DE (occurrence: DE)
  Receive Date: 20240710
  Receipt Date: 20241011
  Transmission Date: 20250114
  Serious: Yes (Other)
  Sender: NOVA LABORATORIES
  Company Number: DE-Nova Laboratories Limited-2159012

PATIENT
  Sex: Female

DRUGS (2)
  1. XROMI [Suspect]
     Active Substance: HYDROXYUREA
     Indication: Polycythaemia vera
  2. RUXOLITINIB PHOSPHATE [Suspect]
     Active Substance: RUXOLITINIB PHOSPHATE
     Dates: start: 202403

REACTIONS (2)
  - Skin cancer [Not Recovered/Not Resolved]
  - Off label use [Unknown]
